FAERS Safety Report 7340888-8 (Version None)
Quarter: 2011Q1

REPORT INFORMATION
  Report Type: 
  Country: None (occurrence: None)
  Receive Date: 20110309
  Receipt Date: 20110210
  Transmission Date: 20110831
  Serious: No
  Sender: FDA-Public Use
  Company Number: US-B.I. PHARMACEUTICALS,INC./RIDGEFIELD-2011-BP-05249BP

PATIENT
  Sex: Female

DRUGS (2)
  1. PREVACID [Concomitant]
     Indication: CHEST PAIN
     Route: 048
  2. ZANTAC 150 [Suspect]
     Indication: CHEST PAIN
     Dosage: 150 MG
     Route: 048
     Dates: start: 20110210

REACTIONS (2)
  - SNEEZING [None]
  - OROPHARYNGEAL PAIN [None]
